FAERS Safety Report 7345702-2 (Version None)
Quarter: 2011Q1

REPORT INFORMATION
  Report Type: 
  Country: None (occurrence: None)
  Receive Date: 20110310
  Receipt Date: 20110225
  Transmission Date: 20110831
  Serious: Yes (Other)
  Sender: FDA-Public Use
  Company Number: DK-MYLANLABS-2010S1007785

PATIENT
  Sex: Female

DRUGS (1)
  1. ALENDRONATE [Suspect]
     Indication: BACK PAIN
     Dates: start: 20060829

REACTIONS (3)
  - BONE FISTULA [None]
  - ABSCESS [None]
  - OSTEOMYELITIS [None]
